FAERS Safety Report 7458124-0 (Version None)
Quarter: 2011Q2

REPORT INFORMATION
  Report Type: 
  Country: None (occurrence: None)
  Receive Date: 20110504
  Receipt Date: 20110426
  Transmission Date: 20111010
  Serious: Yes (Other)
  Sender: FDA-Public Use
  Company Number: US-PFIZER INC-2011090437

PATIENT
  Sex: Male
  Weight: 76.644 kg

DRUGS (8)
  1. MOROCTOCOG ALFA [Suspect]
     Indication: HAEMARTHROSIS
     Dosage: UNK
     Dates: start: 20100417
  2. MOROCTOCOG ALFA [Suspect]
     Indication: DRUG EFFECT DECREASED
     Dosage: 2060 IU AT 5PM, ON DEMAND
     Route: 042
     Dates: start: 20100421, end: 20100421
  3. MOROCTOCOG ALFA [Suspect]
     Dosage: 2060 IU AT 7PM, ON DEMAND
     Route: 042
     Dates: start: 20100422, end: 20100422
  4. MOROCTOCOG ALFA [Suspect]
     Dosage: 2060 IU AT 5AM, ON DEMAND
     Route: 042
     Dates: start: 20100422, end: 20100422
  5. MOROCTOCOG ALFA [Suspect]
     Dosage: 2060 IU AT 9PM, ON DEMAND
     Route: 042
     Dates: start: 20100421, end: 20100421
  6. VICODIN [Concomitant]
     Indication: PAIN
     Dosage: UNK
  7. CELEBREX [Concomitant]
     Indication: ARTHRITIS
     Dosage: UNK
  8. ATRIPLA [Concomitant]
     Indication: HIV INFECTION
     Dosage: UNK

REACTIONS (1)
  - DRUG EFFECT DECREASED [None]
